FAERS Safety Report 7939510-9 (Version None)
Quarter: 2011Q4

REPORT INFORMATION
  Report Type: 
  Country: None (occurrence: None)
  Receive Date: 20111125
  Receipt Date: 20111116
  Transmission Date: 20120403
  Serious: Yes (Hospitalization, Other)
  Sender: FDA-Public Use
  Company Number: NO-AMGEN-NORSP2011061009

PATIENT
  Age: 49 Year
  Sex: Female

DRUGS (4)
  1. METHOTREXATE SODIUM [Suspect]
     Dosage: 7,5 MG PER WEEK, PERIODICALLY DURING 1997-2011
     Route: 048
     Dates: start: 19971201, end: 20110101
  2. ESTRADIOL [Suspect]
     Indication: HORMONE THERAPY
     Dosage: TOTLALLY 15 YEARS OF HORMONAL TREATMENT (CONTRACEPTIONAL + HRT)
     Route: 048
     Dates: end: 20070301
  3. ENBREL [Suspect]
     Indication: PSORIATIC ARTHROPATHY
     Dosage: 50 MG, QWK
     Route: 058
     Dates: start: 20031101, end: 20070301
  4. SIMPONI [Suspect]
     Indication: PSORIATIC ARTHROPATHY
     Dosage: 50 MG, MONTHLY
     Route: 058
     Dates: start: 20101021, end: 20110228

REACTIONS (2)
  - BREAST CANCER STAGE II [None]
  - BREAST CANCER STAGE I [None]
